FAERS Safety Report 5361371-5 (Version None)
Quarter: 2007Q2

REPORT INFORMATION
  Report Type: 
  Country: None (occurrence: None)
  Receive Date: 20070612
  Receipt Date: 20070604
  Transmission Date: 20071010
  Serious: Yes (Other)
  Sender: FDA-Public Use
  Company Number: 2007SP010828

PATIENT
  Age: 53 Year
  Sex: Male

DRUGS (2)
  1. VIRAFERONPEG [Suspect]
     Indication: HEPATITIS C
     Dosage: ; SC
     Route: 058
     Dates: start: 20060901
  2. REBETOL [Suspect]
     Dosage: ; PO
     Route: 048
     Dates: start: 20060901

REACTIONS (3)
  - INJECTION SITE REACTION [None]
  - PANNICULITIS [None]
  - SKIN ULCER [None]
